FAERS Safety Report 5351354-3 (Version None)
Quarter: 2007Q2

REPORT INFORMATION
  Report Type: 
  Country: None (occurrence: None)
  Receive Date: 20070608
  Receipt Date: 20070530
  Transmission Date: 20071010
  Serious: Yes (Other)
  Sender: FDA-Public Use
  Company Number: US-PFIZER INC-2007045183

PATIENT
  Sex: Male

DRUGS (1)
  1. NEURONTIN [Suspect]
     Indication: HERPES ZOSTER

REACTIONS (4)
  - ABASIA [None]
  - FATIGUE [None]
  - PAIN [None]
  - POOR QUALITY SLEEP [None]
